FAERS Safety Report 10716517 (Version 1)
Quarter: 2015Q1

REPORT INFORMATION
  Report Type: Spontaneous
  Country: US (occurrence: US)
  Receive Date: 20150116
  Receipt Date: 20150116
  Transmission Date: 20150721
  Serious: No
  Sender: FDA-Public Use
  Company Number: US-ASTRAZENECA-2015SE02285

PATIENT
  Age: 829 Month
  Sex: Female
  Weight: 86.2 kg

DRUGS (7)
  1. METAMUCIL [Concomitant]
     Active Substance: PLANTAGO SEED
     Indication: IRRITABLE BOWEL SYNDROME
     Route: 048
     Dates: start: 2000
  2. XANAX [Concomitant]
     Active Substance: ALPRAZOLAM
     Indication: PANIC DISORDER
     Route: 048
     Dates: start: 1980
  3. HUMALOG [Concomitant]
     Active Substance: INSULIN LISPRO
     Indication: DIABETES MELLITUS
     Route: 058
  4. PAXIL [Concomitant]
     Active Substance: PAROXETINE HYDROCHLORIDE
     Indication: PANIC DISORDER
     Route: 048
     Dates: start: 1998
  5. ENDERAL [Concomitant]
     Indication: HEART RATE IRREGULAR
     Route: 048
     Dates: start: 1977
  6. CRESTOR [Suspect]
     Active Substance: ROSUVASTATIN CALCIUM
     Indication: BLOOD CHOLESTEROL ABNORMAL
     Route: 048
     Dates: start: 2006
  7. COUMADIN [Concomitant]
     Active Substance: WARFARIN SODIUM
     Indication: DEEP VEIN THROMBOSIS
     Route: 048
     Dates: start: 1993

REACTIONS (10)
  - Myalgia [Unknown]
  - Sleep disorder due to general medical condition, insomnia type [Unknown]
  - Insomnia [Unknown]
  - Limb discomfort [Unknown]
  - Pain in extremity [Unknown]
  - Back pain [Unknown]
  - Gait disturbance [Unknown]
  - Arthralgia [Unknown]
  - Feeling abnormal [Unknown]
  - Pain in extremity [Unknown]

NARRATIVE: CASE EVENT DATE: 201405
